FAERS Safety Report 4855549-4 (Version None)
Quarter: 2005Q4

REPORT INFORMATION
  Report Type: 
  Country: None (occurrence: None)
  Receive Date: 20051214
  Receipt Date: 20051201
  Transmission Date: 20060501
  Serious: Yes (Hospitalization)
  Sender: FDA-Public Use
  Company Number: HQWYE828605DEC05

PATIENT
  Age: 61 Year
  Sex: Male

DRUGS (8)
  1. RAPAMUNE [Suspect]
     Indication: PROPHYLAXIS AGAINST TRANSPLANT REJECTION
     Dosage: 1 MG 1X PER 1 DAY, ORAL
     Route: 048
     Dates: start: 20041111
  2. CYCLOSPORINE [Concomitant]
  3. PREDNISONE [Concomitant]
  4. ATENOLOL [Concomitant]
  5. HYDROCHLOROTHIAZIDE [Concomitant]
  6. WARFARIN SODIUM [Concomitant]
  7. SIMVASTATIN [Concomitant]
  8. ALLOPURINOL [Concomitant]

REACTIONS (11)
  - BLOOD CREATININE INCREASED [None]
  - DEFORMITY [None]
  - INTERNATIONAL NORMALISED RATIO DECREASED [None]
  - INTERVERTEBRAL DISC DEGENERATION [None]
  - INTERVERTEBRAL DISC DISORDER [None]
  - OSTEONECROSIS [None]
  - RADICULOPATHY [None]
  - SPINAL OSTEOARTHRITIS [None]
  - SPONDYLOLISTHESIS [None]
  - SPONDYLOLYSIS [None]
  - UNEVALUABLE EVENT [None]
